FAERS Safety Report 13653028 (Version 1)
Quarter: 2017Q2

REPORT INFORMATION
  Report Type: Spontaneous
  Country: US (occurrence: US)
  Receive Date: 20170614
  Receipt Date: 20170614
  Transmission Date: 20170830
  Serious: No
  Sender: FDA-Public Use
  Company Number: US-ROCHE-1305163

PATIENT
  Sex: Male

DRUGS (1)
  1. XELODA [Suspect]
     Active Substance: CAPECITABINE
     Indication: GASTRIC CANCER
     Dosage: 3 TABLET 14 DAYS ON AND FOLLOWED BY 7 DAYS OFF
     Route: 048
     Dates: start: 20130913

REACTIONS (2)
  - Fatigue [Unknown]
  - Constipation [Unknown]
